FAERS Safety Report 10681401 (Version 2)
Quarter: 2015Q1

REPORT INFORMATION
  Report Type: Spontaneous
  Country: DE (occurrence: DE)
  Receive Date: 20141230
  Receipt Date: 20150108
  Transmission Date: 20150720
  Serious: Yes (Other)
  Sender: FDA-Public Use
  Company Number: GXKR2014DE004763

PATIENT
  Sex: Male
  Weight: 57 kg

DRUGS (12)
  1. BACLOFEN. [Interacting]
     Active Substance: BACLOFEN
     Dosage: 10 MG, TID
  2. QUETIAPINE [Suspect]
     Active Substance: QUETIAPINE
     Indication: DEPRESSION
     Dosage: 300 MG, QHS
     Route: 048
  3. GABAPENTIN. [Concomitant]
     Active Substance: GABAPENTIN
     Indication: PAIN
     Dosage: 300 MG, QID
     Route: 048
  4. BROMAZEPAM [Interacting]
     Active Substance: BROMAZEPAM
     Indication: SLEEP DISORDER
     Dosage: 6 MG, QHS
     Route: 048
  5. OMEPRAZOL [Interacting]
     Active Substance: OMEPRAZOLE
     Indication: PROPHYLAXIS
     Dosage: 40 MG, BID
     Route: 048
  6. SILDENAFIL. [Interacting]
     Active Substance: SILDENAFIL
     Indication: ERECTILE DYSFUNCTION
     Dosage: 50 MG, PRN
     Route: 048
  7. RITONAVIR. [Interacting]
     Active Substance: RITONAVIR
     Indication: HIV INFECTION
     Dosage: 100 MG, QD
  8. DOXEPIN [Concomitant]
     Active Substance: DOXEPIN
     Indication: DEPRESSION
     Dosage: 50 MG, QHS
     Route: 048
  9. GABAPENTIN. [Concomitant]
     Active Substance: GABAPENTIN
     Dosage: 300 MG, BID
     Route: 048
  10. DARUNAVIR [Interacting]
     Active Substance: DARUNAVIR
     Indication: HIV INFECTION
     Dosage: 400 MG, BID
  11. FLUNITRAZEPAM [Interacting]
     Active Substance: FLUNITRAZEPAM
     Indication: SLEEP DISORDER
     Dosage: 1 MG, QHS
     Route: 048
  12. TRUVADA [Suspect]
     Active Substance: EMTRICITABINE\TENOFOVIR DISOPROXIL FUMARATE
     Indication: HIV INFECTION
     Dosage: 1 DF, QD

REACTIONS (10)
  - Drug dependence [Unknown]
  - Off label use [Unknown]
  - Incorrect dose administered [Unknown]
  - Fatigue [Unknown]
  - Drug interaction [Unknown]
  - Drug abuse [Not Recovered/Not Resolved]
  - Drug withdrawal syndrome [Unknown]
  - Disturbance in attention [Unknown]
  - Incorrect drug administration duration [Unknown]
  - Contraindicated drug administered [Unknown]
